FAERS Safety Report 11933702 (Version 1)
Quarter: 2016Q1

REPORT INFORMATION
  Report Type: Spontaneous
  Country: US (occurrence: US)
  Receive Date: 20160121
  Receipt Date: 20160121
  Transmission Date: 20160526
  Serious: No
  Sender: FDA-Public Use
  Company Number: US-BAYER-2016-012205

PATIENT
  Age: 62 Year
  Sex: Female
  Weight: 59.41 kg

DRUGS (1)
  1. MIRALAX [Suspect]
     Active Substance: POLYETHYLENE GLYCOL 3350
     Indication: CONSTIPATION
     Dosage: 1 DF, PRN
     Dates: start: 2015

REACTIONS (4)
  - Abdominal discomfort [None]
  - Circumstance or information capable of leading to medication error [None]
  - Discomfort [None]
  - Diarrhoea [None]
